FAERS Safety Report 9100051 (Version 2)
Quarter: 2013Q2

REPORT INFORMATION
  Report Type: Spontaneous
  Country: US (occurrence: US)
  Receive Date: 20130215
  Receipt Date: 20130411
  Transmission Date: 20140414
  Serious: Yes (Hospitalization)
  Sender: FDA-Public Use
  Company Number: US-ABBOTT-13P-163-1049860-00

PATIENT
  Sex: Male
  Weight: 86.26 kg

DRUGS (5)
  1. ANDROGEL [Suspect]
     Indication: BLOOD TESTOSTERONE DECREASED
     Dosage: 1 (5GRM) PACKET DAILY
     Dates: start: 2009, end: 201104
  2. ANDROGEL [Suspect]
     Indication: BLOOD TESTOSTERONE DECREASED
     Dosage: 4 PUMPS DAILY
     Dates: start: 201209
  3. VITAMIN C [Concomitant]
     Indication: PRODUCT USED FOR UNKNOWN INDICATION
  4. MELATONIN [Concomitant]
     Indication: PRODUCT USED FOR UNKNOWN INDICATION
  5. FUROSEMIDE [Concomitant]
     Indication: PRODUCT USED FOR UNKNOWN INDICATION

REACTIONS (7)
  - Hypoaesthesia [Recovered/Resolved]
  - Pain in extremity [Recovered/Resolved]
  - Gait disturbance [Recovered/Resolved]
  - Intervertebral disc degeneration [Recovered/Resolved]
  - Drug administered at inappropriate site [Not Recovered/Not Resolved]
  - Lumbar radiculopathy [Unknown]
  - Vertebral foraminal stenosis [Unknown]
